FAERS Safety Report 7320450-3 (Version None)
Quarter: 2011Q1

REPORT INFORMATION
  Report Type: 
  Country: None (occurrence: None)
  Receive Date: 20110228
  Receipt Date: 20110217
  Transmission Date: 20110831
  Serious: Yes (Hospitalization)
  Sender: FDA-Public Use
  Company Number: B0697825A

PATIENT
  Sex: Male

DRUGS (8)
  1. BEPRICOR [Concomitant]
     Indication: ARRHYTHMIA
     Dosage: 200MG PER DAY
     Route: 048
  2. VALTREX [Suspect]
     Indication: HERPES ZOSTER
     Dosage: 3000MG PER DAY
     Route: 048
     Dates: start: 20110125, end: 20110130
  3. METHYCOBAL [Concomitant]
     Indication: HERPES ZOSTER
     Dosage: 1500MCG PER DAY
     Route: 048
     Dates: start: 20110125
  4. CALONAL [Concomitant]
     Route: 048
  5. ASPIRIN [Concomitant]
     Indication: ARRHYTHMIA
     Dosage: 100MG PER DAY
     Route: 048
  6. MEIACT [Suspect]
     Indication: NASOPHARYNGITIS
     Dosage: 300MG PER DAY
     Route: 048
     Dates: start: 20110124, end: 20110129
  7. VERAPAMIL HCL [Concomitant]
     Indication: ARRHYTHMIA
     Dosage: 120MG PER DAY
     Route: 048
  8. SELBEX [Concomitant]
     Dosage: 150MG PER DAY
     Route: 048

REACTIONS (5)
  - BLOOD CREATININE INCREASED [None]
  - BLOOD UREA INCREASED [None]
  - BLOOD SODIUM DECREASED [None]
  - C-REACTIVE PROTEIN INCREASED [None]
  - RENAL FAILURE ACUTE [None]
